FAERS Safety Report 8581530 (Version 4)
Quarter: 2014Q3

REPORT INFORMATION
  Report Type: Spontaneous
  Country: US (occurrence: US)
  Receive Date: 20120525
  Receipt Date: 20140902
  Transmission Date: 20150326
  Serious: Yes (Other)
  Sender: FDA-Public Use
  Company Number: US-ASTRAZENECA-2012SE31430

PATIENT
  Age: 52 Year
  Sex: Female

DRUGS (3)
  1. NEXIUM [Suspect]
     Active Substance: ESOMEPRAZOLE MAGNESIUM
     Route: 048
     Dates: end: 201408
  2. NEXIUM [Suspect]
     Active Substance: ESOMEPRAZOLE MAGNESIUM
     Route: 048
  3. PRILOSEC [Suspect]
     Active Substance: OMEPRAZOLE MAGNESIUM
     Route: 048

REACTIONS (13)
  - Blindness [Unknown]
  - Diabetes mellitus [Unknown]
  - Oesophageal pain [Unknown]
  - Depression [Unknown]
  - Dysphagia [Unknown]
  - Back disorder [Unknown]
  - Gastrooesophageal reflux disease [Unknown]
  - Drug ineffective [Unknown]
  - Drug dose omission [Unknown]
  - Chest pain [Unknown]
  - Malaise [Unknown]
  - Dyspepsia [Unknown]
  - Abdominal pain upper [Unknown]
